FAERS Safety Report 18866503 (Version 2)
Quarter: 2021Q3

REPORT INFORMATION
  Report Type: Spontaneous
  Country: US (occurrence: US)
  Receive Date: 20210209
  Receipt Date: 20210827
  Transmission Date: 20211014
  Serious: Yes (Hospitalization, Other)
  Sender: FDA-Public Use
  Company Number: US-LEADINGPHARMA-US-2021LEALIT00039

PATIENT
  Age: 76 Year
  Sex: Male

DRUGS (3)
  1. HALOPERIDOL. [Concomitant]
     Active Substance: HALOPERIDOL
     Indication: DELIRIUM
     Dosage: ONE DOSE
     Route: 030
  2. LORAZEPAM. [Suspect]
     Active Substance: LORAZEPAM
     Indication: MYOCLONUS
     Route: 042
  3. HALOPERIDOL. [Concomitant]
     Active Substance: HALOPERIDOL
     Indication: AGITATION

REACTIONS (1)
  - Drug ineffective for unapproved indication [None]
